FAERS Safety Report 20152406 (Version 4)
Quarter: 2023Q4

REPORT INFORMATION
  Report Type: Spontaneous
  Country: US (occurrence: US)
  Receive Date: 20211206
  Receipt Date: 20231221
  Transmission Date: 20240109
  Serious: Yes (Other)
  Sender: FDA-Public Use
  Company Number: US-PFIZER INC-202101656470

PATIENT
  Age: 76 Year
  Sex: Female
  Weight: 93.4 kg

DRUGS (4)
  1. IBRANCE [Suspect]
     Active Substance: PALBOCICLIB
     Indication: Breast cancer female
     Dosage: 125 MG, CYCLIC (TAKE 1 TABLET BY MOUTH DAILY. ON DAYS 1-21, OFF FOR 7 DAYS)
     Route: 048
     Dates: start: 20211019
  2. IBRANCE [Suspect]
     Active Substance: PALBOCICLIB
     Indication: Hormone receptor positive breast cancer
     Dosage: 125 MG, CYCLIC (TAKE 1 TABLET BY MOUTH ON DAYS 1-21, THEN OFF 7 DAYS)
     Route: 048
     Dates: start: 202109
  3. FASLODEX [Concomitant]
     Active Substance: FULVESTRANT
     Dosage: UNK
     Dates: start: 202109
  4. EFFEXOR [Concomitant]
     Active Substance: VENLAFAXINE HYDROCHLORIDE
     Dosage: 37.5 MG, DAILY
     Route: 048

REACTIONS (9)
  - Cerebrovascular accident [Unknown]
  - Leukopenia [Unknown]
  - Hypoacusis [Unknown]
  - Speech disorder [Unknown]
  - Neoplasm progression [Unknown]
  - Fatigue [Unknown]
  - Arthralgia [Unknown]
  - Hot flush [Unknown]
  - Asthenia [Unknown]
